FAERS Safety Report 7682098-0 (Version None)
Quarter: 2011Q3

REPORT INFORMATION
  Report Type: 
  Country: None (occurrence: None)
  Receive Date: 20110810
  Receipt Date: 20110728
  Transmission Date: 20111222
  Serious: Yes (Hospitalization)
  Sender: FDA-Public Use
  Company Number: 1000022646

PATIENT
  Age: 71 Year
  Sex: Female
  Weight: 78 kg

DRUGS (10)
  1. PROMOCARD DURETTE (ISOSORBIDE MONONITRATE (ISOSORBIDE MONONITRATE) [Concomitant]
  2. OXAZEPAM (OXAZEPAM) (OXAZEPAM) [Concomitant]
  3. PREDNISOLON (PREDNISOLONE) 9PREDNISOLONE) [Concomitant]
  4. SALBUTAMOL (SALBUTAMOL) (SALBUTAMOL) [Concomitant]
  5. ESOMEPRAZOL (ESOMEPRAZOLE) (ESOMEPRAZOLE) [Concomitant]
  6. LEXAPRO [Suspect]
     Indication: DEPRESSION
     Dosage: 5 MG (5 MG, 1 IN 1 D), ORAL
     Route: 048
     Dates: start: 20110101, end: 20110721
  7. LEXAPRO [Suspect]
     Indication: DEPRESSION
     Dosage: 10 MG (10 MG, 1 IN 1 D), ORAL
     Route: 048
     Dates: start: 20080501, end: 20110101
  8. RISEDRONIC ACID (RISEDRONATE SODIUM) (RISEDRONATE SODIUM) [Concomitant]
  9. ACETYLSALICYLIC ACID SRT [Concomitant]
  10. METOPROLOL SUCCINATE [Concomitant]

REACTIONS (6)
  - DYSPNOEA [None]
  - PULMONARY HYPERTENSION [None]
  - INTERSTITIAL LUNG DISEASE [None]
  - LICHEN SCLEROSUS [None]
  - NON-CARDIAC CHEST PAIN [None]
  - COUGH [None]
